FAERS Safety Report 24689856 (Version 1)
Quarter: 2024Q4

REPORT INFORMATION
  Report Type: Spontaneous
  Country: FR (occurrence: FR)
  Receive Date: 20241203
  Receipt Date: 20241203
  Transmission Date: 20250114
  Serious: Yes (Other)
  Sender: GLAXOSMITHKLINE
  Company Number: None

PATIENT

DRUGS (2)
  1. LAMICTAL [Suspect]
     Active Substance: LAMOTRIGINE
     Indication: Infantile spasms
     Dosage: 100 MG, QD (50MGX2/D)
     Route: 048
     Dates: start: 20231006
  2. VALPROATE SODIUM [Suspect]
     Active Substance: VALPROATE SODIUM
     Indication: Infantile spasms
     Dosage: 1500 MG, QD (750MGX2/D)
     Route: 048
     Dates: start: 202304

REACTIONS (3)
  - Thrombocytopenia [Unknown]
  - Hyperammonaemia [Unknown]
  - Drug level increased [Unknown]

NARRATIVE: CASE EVENT DATE: 20240621
